FAERS Safety Report 7522232-6 (Version None)
Quarter: 2011Q2

REPORT INFORMATION
  Report Type: 
  Country: None (occurrence: None)
  Receive Date: 20110603
  Receipt Date: 20110524
  Transmission Date: 20111010
  Serious: Yes (Death, Hospitalization)
  Sender: FDA-Public Use
  Company Number: US-CELGENEUS-163-21880-11053184

PATIENT
  Sex: Male

DRUGS (9)
  1. MORPHINE [Concomitant]
     Route: 065
  2. AMLODIPINE [Concomitant]
     Route: 065
  3. ACYCLOVIR [Concomitant]
     Route: 065
  4. RENAL CAPS [Concomitant]
     Route: 054
  5. REVLIMID [Suspect]
     Indication: MULTIPLE MYELOMA
     Dosage: 5 MILLIGRAM
     Route: 048
     Dates: start: 20091101
  6. REVLIMID [Suspect]
     Dosage: 2.5 MILLIGRAM
     Route: 048
     Dates: start: 20091218
  7. OMEPRAZOLE [Concomitant]
     Route: 065
  8. RENAGEL [Concomitant]
     Route: 065
  9. DECADRON [Concomitant]
     Route: 065

REACTIONS (4)
  - DEEP VEIN THROMBOSIS [None]
  - CELLULITIS [None]
  - BLOOD GLUCOSE INCREASED [None]
  - DEATH [None]
